FAERS Safety Report 9265469 (Version 4)
Quarter: 2016Q2

REPORT INFORMATION
  Report Type: Spontaneous
  Country: US (occurrence: US)
  Receive Date: 20130501
  Receipt Date: 20160602
  Transmission Date: 20160815
  Serious: No
  Sender: FDA-Public Use
  Company Number: US-009507513-1304USA014626

PATIENT
  Sex: Male
  Weight: 70.3 kg

DRUGS (1)
  1. PROPECIA [Suspect]
     Active Substance: FINASTERIDE
     Indication: ALOPECIA
     Dosage: UNK
     Route: 048
     Dates: start: 200908, end: 201104

REACTIONS (7)
  - Localised infection [Unknown]
  - Erectile dysfunction [Recovering/Resolving]
  - Vitamin D deficiency [Recovering/Resolving]
  - Haematuria [Recovered/Resolved]
  - Prostatitis [Unknown]
  - Seborrhoeic dermatitis [Unknown]
  - Sexual dysfunction [Recovering/Resolving]

NARRATIVE: CASE EVENT DATE: 2009
